FAERS Safety Report 24432148 (Version 1)
Quarter: 2024Q4

REPORT INFORMATION
  Report Type: Spontaneous
  Country: US (occurrence: US)
  Receive Date: 20241014
  Receipt Date: 20241014
  Transmission Date: 20250114
  Serious: Yes (Hospitalization, Other)
  Sender: BIOLOGICAL E. LIMITED
  Company Number: US-BELUSA-2024BELLIT0105

PATIENT

DRUGS (1)
  1. HEPARIN SODIUM [Suspect]
     Active Substance: HEPARIN SODIUM
     Indication: Jugular vein thrombosis
     Route: 041

REACTIONS (2)
  - Pulseless electrical activity [Unknown]
  - Retroperitoneal haematoma [Unknown]
